FAERS Safety Report 12261763 (Version 7)
Quarter: 2016Q4

REPORT INFORMATION
  Report Type: Report from Study
  Country: DE (occurrence: DE)
  Receive Date: 20160413
  Receipt Date: 20161005
  Transmission Date: 20170207
  Serious: Yes (Hospitalization)
  Sender: FDA-Public Use
  Company Number: DE-ROCHE-1739548

PATIENT
  Age: 55 Year
  Sex: Female
  Weight: 67 kg

DRUGS (9)
  1. PERTUZUMAB [Suspect]
     Active Substance: PERTUZUMAB
     Route: 042
     Dates: start: 20160603
  2. TRASTUZUMAB [Suspect]
     Active Substance: TRASTUZUMAB
     Indication: BREAST CANCER
     Dosage: LAST DOSE BEFORE UTI ON 17/MAR/2016 AND ON 06/MAY/2016 PRIOR TO WBC DECREASE?LOADING DOSE
     Route: 042
     Dates: start: 20160317, end: 20160317
  3. PACLITAXEL. [Suspect]
     Active Substance: PACLITAXEL
     Indication: BREAST CANCER
     Dosage: LAST DOSE PRIOR TO SAE 04/MAR/2016.
     Route: 042
     Dates: start: 20160318
  4. PERTUZUMAB [Suspect]
     Active Substance: PERTUZUMAB
     Dosage: MAINTENANCE DOSE
     Route: 042
     Dates: start: 20160407, end: 20160527
  5. PERTUZUMAB [Suspect]
     Active Substance: PERTUZUMAB
     Indication: BREAST CANCER
     Dosage: LAST DOSE BEFORE UTI ON 17/MAR/2016 AND ON 06/MAY/2016 PRIOR TO WBC DECREASE?LOADING DOSE
     Route: 042
     Dates: start: 20160317, end: 20160317
  6. TRASTUZUMAB [Suspect]
     Active Substance: TRASTUZUMAB
     Route: 042
     Dates: start: 20160603
  7. EPIRUBICIN [Suspect]
     Active Substance: EPIRUBICIN
     Indication: BREAST CANCER
     Dosage: LAST DOSE PRIOR TO SAE 04/MAR/2016
     Route: 042
     Dates: start: 20160205
  8. CYCLOPHOSPHAMID [Suspect]
     Active Substance: CYCLOPHOSPHAMIDE
     Indication: BREAST CANCER
     Dosage: LAST DOSE PRIOR TO SAE: 18/MAY/2016?LAST DOSE PRIOR TO FEVER: 03/JUN/2016
     Route: 042
     Dates: start: 20160429, end: 20160527
  9. TRASTUZUMAB [Suspect]
     Active Substance: TRASTUZUMAB
     Dosage: LAST DOSE PRIOR TO SAE WAS ON 06/MAY/2016?MAINTENANCE DOSE
     Route: 042
     Dates: start: 20160407, end: 20160527

REACTIONS (3)
  - White blood cell count decreased [Recovered/Resolved]
  - Urinary tract infection [Recovered/Resolved]
  - Pyrexia [Recovered/Resolved]

NARRATIVE: CASE EVENT DATE: 20160325
